FAERS Safety Report 23364557 (Version 3)
Quarter: 2024Q1

REPORT INFORMATION
  Report Type: Spontaneous
  Country: KZ (occurrence: KZ)
  Receive Date: 20240104
  Receipt Date: 20240205
  Transmission Date: 20240410
  Serious: Yes (Other)
  Sender: FDA-Public Use
  Company Number: KZ-Merck Healthcare KGaA-2023497578

PATIENT
  Age: 21 Year
  Sex: Female

DRUGS (2)
  1. MAVENCLAD [Suspect]
     Active Substance: CLADRIBINE
     Indication: Multiple sclerosis
     Dosage: FIRST COURSE FIRST MONTH.
     Dates: start: 202208
  2. MAVENCLAD [Suspect]
     Active Substance: CLADRIBINE
     Dosage: FIRST COURSE SECOND MONTH.
     Dates: start: 202209

REACTIONS (4)
  - Uterine polyp [Unknown]
  - Endometriosis [Unknown]
  - Ovarian cyst [Not Recovered/Not Resolved]
  - Multiple sclerosis [Not Recovered/Not Resolved]

NARRATIVE: CASE EVENT DATE: 20231221
